FAERS Safety Report 24774822 (Version 1)
Quarter: 2024Q4

REPORT INFORMATION
  Report Type: Spontaneous
  Country: LB (occurrence: LB)
  Receive Date: 20241226
  Receipt Date: 20241226
  Transmission Date: 20250114
  Serious: Yes (Other)
  Sender: SANDOZ
  Company Number: LB-002147023-NVSC2024LB243084

PATIENT
  Age: 78 Year
  Sex: Male

DRUGS (1)
  1. ZOLEDRONIC ACID [Suspect]
     Active Substance: ZOLEDRONIC ACID
     Indication: Bone disorder
     Dosage: UNK, HIGH DOSE
     Route: 065

REACTIONS (2)
  - Oral pain [Unknown]
  - Osteonecrosis of jaw [Unknown]
